FAERS Safety Report 5032404-0 (Version None)
Quarter: 2006Q2

REPORT INFORMATION
  Report Type: 
  Country: None (occurrence: None)
  Receive Date: 20060621
  Receipt Date: 20060621
  Transmission Date: 20061013
  Serious: Yes (Other)
  Sender: FDA-Public Use
  Company Number: None

PATIENT
  Sex: Male

DRUGS (2)
  1. ABILIFY [Suspect]
     Dosage: 1/2 TABLET (2.5 MG)   AM + PM  BY MOUTH
     Route: 048
     Dates: start: 20060616
  2. ABILIFY [Suspect]
     Dosage: 1/2 TABLET (2.5 MG)   AM + PM  BY MOUTH
     Route: 048
     Dates: start: 20060619

REACTIONS (6)
  - CONVULSION [None]
  - FAECAL INCONTINENCE [None]
  - HEADACHE [None]
  - HYPERHIDROSIS [None]
  - PALLOR [None]
  - VOMITING [None]
